FAERS Safety Report 4453786-4 (Version None)
Quarter: 2004Q3

REPORT INFORMATION
  Report Type: 
  Country: None (occurrence: None)
  Receive Date: 20040920
  Receipt Date: 20040908
  Transmission Date: 20050211
  Serious: Yes (Other)
  Sender: FDA-Public Use
  Company Number: IE-BRISTOL-MYERS SQUIBB COMPANY-12697504

PATIENT
  Age: 14 Year
  Sex: Female

DRUGS (2)
  1. PARAPLATIN [Suspect]
     Indication: GLIOMA
     Route: 042
  2. VINCRISTINE [Concomitant]
     Indication: GLIOMA
     Dosage: 1.5 TO 2 MG/M^2

REACTIONS (1)
  - INAPPROPRIATE ANTIDIURETIC HORMONE SECRETION [None]
